FAERS Safety Report 7419230-X (Version None)
Quarter: 2011Q2

REPORT INFORMATION
  Report Type: 
  Country: None (occurrence: None)
  Receive Date: 20110415
  Receipt Date: 20110406
  Transmission Date: 20111010
  Serious: Yes (Death)
  Sender: FDA-Public Use
  Company Number: US-WATSON-2011-04887

PATIENT

DRUGS (1)
  1. FENTANYL CITRATE [Suspect]
     Indication: PRODUCT USED FOR UNKNOWN INDICATION
     Dosage: 2 PATCHES AT THE SAME TIME
     Route: 062

REACTIONS (1)
  - DEATH [None]
